FAERS Safety Report 21102352 (Version 13)
Quarter: 2023Q1

REPORT INFORMATION
  Report Type: Report from Study
  Country: US (occurrence: US)
  Receive Date: 20220719
  Receipt Date: 20230306
  Transmission Date: 20230417
  Serious: Yes (Hospitalization)
  Sender: FDA-Public Use
  Company Number: US-002147023-NVSC2022US162764

PATIENT
  Age: 63 Year
  Sex: Male
  Weight: 88.45 kg

DRUGS (7)
  1. TREPROSTINIL [Suspect]
     Active Substance: TREPROSTINIL
     Indication: Pulmonary arterial hypertension
     Dosage: 72 NG/KG/MIN, CONT
     Route: 058
     Dates: start: 20220208
  2. TREPROSTINIL [Suspect]
     Active Substance: TREPROSTINIL
     Dosage: 75 NG/KG/MIN, CONT (0.042 ML/HR)
     Route: 065
  3. TREPROSTINIL [Suspect]
     Active Substance: TREPROSTINIL
     Dosage: 93 NG/KG/ MIN, CONT
     Route: 058
  4. TREPROSTINIL [Suspect]
     Active Substance: TREPROSTINIL
     Dosage: 122 NG/KG/MIN, CONT
     Route: 042
  5. TREPROSTINIL [Suspect]
     Active Substance: TREPROSTINIL
     Dosage: 142 NG/KG/MIN, CONT
     Route: 042
  6. AMBRISENTAN [Concomitant]
     Active Substance: AMBRISENTAN
     Indication: Product used for unknown indication
     Dosage: UNK
     Route: 065
  7. ADEMPAS [Concomitant]
     Active Substance: RIOCIGUAT
     Indication: Product used for unknown indication
     Dosage: UNK
     Route: 065

REACTIONS (13)
  - Upper respiratory tract infection [Unknown]
  - Dyspnoea [Unknown]
  - Flushing [Unknown]
  - Arrhythmia [Unknown]
  - Infusion site pain [Recovering/Resolving]
  - Hypotension [Unknown]
  - Nausea [Unknown]
  - Vomiting [Unknown]
  - Wrong technique in product usage process [Unknown]
  - Nausea [Recovered/Resolved]
  - Catheter site pruritus [Unknown]
  - Circumstance or information capable of leading to device use error [Unknown]
  - Drug ineffective [Unknown]

NARRATIVE: CASE EVENT DATE: 20221214
